FAERS Safety Report 5357154-2 (Version None)
Quarter: 2007Q2

REPORT INFORMATION
  Report Type: 
  Country: None (occurrence: None)
  Receive Date: 20070612
  Receipt Date: 20070612
  Transmission Date: 20071010
  Serious: Yes (Hospitalization)
  Sender: FDA-Public Use
  Company Number: None

PATIENT
  Age: 44 Year
  Sex: Female
  Weight: 107.9561 kg

DRUGS (7)
  1. TAXOTERE [Suspect]
  2. BENADRYL/ATIVAN/DECADRON SYRIN CONTINOUS INSULIN GLARGINE [Concomitant]
  3. INSULIN ASPART SLIDING SCALE [Concomitant]
  4. ESOMEPRAZOLE MAGNESIUM [Concomitant]
  5. SUCRALFATE [Concomitant]
  6. TAXOTERE [Concomitant]
  7. METFORMIN HCL [Concomitant]

REACTIONS (8)
  - BODY TEMPERATURE INCREASED [None]
  - CHEST PAIN [None]
  - CHILLS [None]
  - GASTRIC POLYPS [None]
  - NAUSEA [None]
  - OESOPHAGEAL POLYP [None]
  - PLEURITIC PAIN [None]
  - PYREXIA [None]
